FAERS Safety Report 19058643 (Version 1)
Quarter: 2021Q1

REPORT INFORMATION
  Report Type: Spontaneous
  Country: US (occurrence: US)
  Receive Date: 20210325
  Receipt Date: 20210325
  Transmission Date: 20210420
  Serious: Yes (Other)
  Sender: FDA-Public Use
  Company Number: US-ASTELLAS-2021US010149

PATIENT
  Sex: Male

DRUGS (3)
  1. PADCEV [Suspect]
     Active Substance: ENFORTUMAB VEDOTIN-EJFV
     Dosage: UNK, UNKNOWN FREQ. (DOSE WAS REDUCED BY 25% IN AUGUST OF AN UNSPECIFIED YEAR)
     Route: 065
  2. PADCEV [Suspect]
     Active Substance: ENFORTUMAB VEDOTIN-EJFV
     Indication: PRODUCT USED FOR UNKNOWN INDICATION
     Dosage: UNK UNK, UNKNOWN FREQ.
     Route: 065
  3. PADCEV [Suspect]
     Active Substance: ENFORTUMAB VEDOTIN-EJFV
     Dosage: UNK UNK, UNKNOWN FREQ. (PATIENT BACK ON A FULL DOSE)
     Route: 065
     Dates: start: 202011

REACTIONS (2)
  - Neuropathy peripheral [Recovered/Resolved]
  - Fatigue [Not Recovered/Not Resolved]
